FAERS Safety Report 10235609 (Version 2)
Quarter: 2014Q2

REPORT INFORMATION
  Report Type: Spontaneous
  Country: IL (occurrence: IL)
  Receive Date: 20140613
  Receipt Date: 20140623
  Transmission Date: 20141212
  Serious: Yes (Death)
  Sender: FDA-Public Use
  Company Number: IL-SA-2014SA079040

PATIENT
  Age: 78 Year
  Sex: Male

DRUGS (2)
  1. CEREZYME [Suspect]
     Indication: GAUCHER^S DISEASE
     Dosage: DOSE RANGING FROM 12.5 TO 143 U/KG
     Route: 042
     Dates: start: 20021212
  2. VPRIV [Suspect]
     Indication: GAUCHER^S DISEASE
     Dosage: DOSE: 15.5 U/KG?AROUND TWO YEARS AGO
     Route: 065

REACTIONS (1)
  - Pancreatic carcinoma [Fatal]
